FAERS Safety Report 15895309 (Version 1)
Quarter: 2019Q1

REPORT INFORMATION
  Report Type: Report from Study
  Country: DE (occurrence: DE)
  Receive Date: 20190131
  Receipt Date: 20190131
  Transmission Date: 20190417
  Serious: Yes (Hospitalization, Other)
  Sender: FDA-Public Use
  Company Number: DE-TORRENT-00013084

PATIENT
  Age: 39 Year
  Sex: Male
  Weight: 69 kg

DRUGS (13)
  1. TAXOFIT [Suspect]
     Active Substance: MINERALS\VITAMINS
     Indication: FATIGUE
     Dosage: UNKNOWN
     Route: 048
     Dates: start: 20011127
  2. BALDRIAN [Suspect]
     Active Substance: VALERIAN
     Indication: PRODUCT USED FOR UNKNOWN INDICATION
     Dosage: UNKNOWN
     Route: 048
  3. ORFIRIL [Suspect]
     Active Substance: VALPROATE SODIUM
     Indication: PRODUCT USED FOR UNKNOWN INDICATION
     Dosage: 1000MG/DAY
     Route: 048
     Dates: start: 1996, end: 20011112
  4. METOCLOPRAMIDE HYDROCHLORIDE. [Suspect]
     Active Substance: METOCLOPRAMIDE HYDROCHLORIDE
     Indication: NAUSEA
     Dosage: 20 DRP, TID
     Route: 048
     Dates: start: 20011128
  5. PARACETAMOL [Suspect]
     Active Substance: ACETAMINOPHEN
     Indication: NASOPHARYNGITIS
     Dosage: UNKNOWN
     Route: 048
     Dates: start: 20011128
  6. CARBAMAZEPINE. [Suspect]
     Active Substance: CARBAMAZEPINE
     Indication: EPILEPSY
     Dosage: UNKNOWN
     Route: 048
     Dates: start: 1978, end: 20011112
  7. RANITIDINE. [Suspect]
     Active Substance: RANITIDINE
     Indication: PRODUCT USED FOR UNKNOWN INDICATION
     Dosage: 300MG/DAY
     Route: 048
  8. KAMILLOSAN KONZENTRAT LOESUNG [Suspect]
     Active Substance: HERBALS\HOMEOPATHICS\MATRICARIA RECUTITA
     Indication: PRODUCT USED FOR UNKNOWN INDICATION
     Dosage: UNK, ONCE/SINGLE
     Dates: start: 20011201
  9. ERGENYL CHRONO [Suspect]
     Active Substance: VALPROIC ACID
     Indication: EPILEPSY
     Dosage: 1000 MG, BID
     Route: 048
     Dates: start: 20011113
  10. PHENYTOIN. [Suspect]
     Active Substance: PHENYTOIN
     Indication: EPILEPSY
     Dosage: UNKNOWN
     Route: 048
     Dates: start: 20011025
  11. LEPTILAN [Suspect]
     Active Substance: VALPROATE SODIUM
     Indication: EPILEPSY
     Dosage: 300 MG, QD
     Route: 048
     Dates: start: 20011113
  12. SAGE. [Suspect]
     Active Substance: SAGE
     Indication: NASOPHARYNGITIS
     Dosage: UNKNOWN
     Dates: start: 20011201
  13. VALERIAN EXTRACT [Suspect]
     Active Substance: VALERIAN EXTRACT
     Indication: RESTLESSNESS
     Dosage: UNKNOWN
     Dates: start: 20011201

REACTIONS (17)
  - Fatigue [Unknown]
  - Stevens-Johnson syndrome [Recovering/Resolving]
  - Epilepsy [Unknown]
  - Alanine aminotransferase increased [Unknown]
  - Dysphagia [Unknown]
  - Restlessness [Unknown]
  - Rash macular [Recovering/Resolving]
  - Aspartate aminotransferase increased [Unknown]
  - Nausea [Unknown]
  - Pruritus [Recovering/Resolving]
  - Gamma-glutamyltransferase increased [Unknown]
  - Nasopharyngitis [Unknown]
  - Liver function test abnormal [Unknown]
  - Erythema [Recovering/Resolving]
  - Pyrexia [Recovering/Resolving]
  - Mucosal erosion [Recovering/Resolving]
  - Swelling face [Recovering/Resolving]

NARRATIVE: CASE EVENT DATE: 20011127
